FAERS Safety Report 23509057 (Version 2)
Quarter: 2024Q2

REPORT INFORMATION
  Report Type: Spontaneous
  Country: US (occurrence: US)
  Receive Date: 20240209
  Receipt Date: 20240506
  Transmission Date: 20240716
  Serious: No
  Sender: FDA-Public Use
  Company Number: US-SA-SAC20240207000179

PATIENT
  Age: 52 Year
  Sex: Female

DRUGS (3)
  1. DUPIXENT [Suspect]
     Active Substance: DUPILUMAB
     Indication: Asthma
     Dosage: 300 MG, QOW
     Route: 058
     Dates: start: 202312
  2. DUPIXENT [Suspect]
     Active Substance: DUPILUMAB
     Dosage: 600 MG, 1X
     Route: 058
     Dates: start: 202402, end: 202402
  3. DUPIXENT [Suspect]
     Active Substance: DUPILUMAB
     Dosage: 300 MG, QOW
     Route: 058
     Dates: start: 2024

REACTIONS (9)
  - Gastrointestinal disorder [Unknown]
  - Sleep disorder due to a general medical condition [Unknown]
  - Asthma [Unknown]
  - Cough [Unknown]
  - Wheezing [Unknown]
  - Dyspnoea [Unknown]
  - Chest discomfort [Unknown]
  - Chest pain [Unknown]
  - Injection site pruritus [Unknown]

NARRATIVE: CASE EVENT DATE: 20240101
